FAERS Safety Report 9521994 (Version 1)
Quarter: 2013Q1

REPORT INFORMATION
  Report Type: Spontaneous
  Country: US (occurrence: None)
  Receive Date: 20130305
  Receipt Date: 20130305
  Transmission Date: 20140127
  Serious: Yes (Hospitalization, Other)
  Sender: FDA-Public Use
  Company Number: 163-21880-12013285

PATIENT
  Age: 79 Year
  Sex: Male

DRUGS (6)
  1. REVLIMID (LENALIDOMIDE) (25 MILLIGRAM, CAPSULES) [Suspect]
     Indication: PLASMA CELL MYELOMA
     Dosage: 1 IN 1 D
     Route: 048
     Dates: start: 20111024
  2. BACTRIM [Concomitant]
  3. VALTREX [Concomitant]
  4. DEXAMETHASONE [Concomitant]
  5. VELCADE [Concomitant]
  6. ASPIRIN [Concomitant]

REACTIONS (4)
  - Haemolytic anaemia [None]
  - Thrombocytopenia [None]
  - Pulmonary embolism [None]
  - Herpes zoster [None]
